FAERS Safety Report 25962279 (Version 1)
Quarter: 2025Q4

REPORT INFORMATION
  Report Type: Spontaneous
  Country: CN (occurrence: CN)
  Receive Date: 20251027
  Receipt Date: 20251027
  Transmission Date: 20260117
  Serious: Yes (Other)
  Sender: JOHNSON AND JOHNSON
  Company Number: CN-JNJFOC-20251024044

PATIENT
  Age: 74 Year
  Sex: Male
  Weight: 60 kg

DRUGS (1)
  1. RISPERDAL [Suspect]
     Active Substance: RISPERIDONE
     Indication: Psychotic disorder due to a general medical condition
     Dosage: 1 DOSE
     Route: 048
     Dates: start: 20251011, end: 20251014

REACTIONS (6)
  - Extrapyramidal disorder [Recovering/Resolving]
  - Gait disturbance [Recovering/Resolving]
  - Bradykinesia [Recovering/Resolving]
  - Hypertonia [Recovering/Resolving]
  - Apathy [Recovering/Resolving]
  - Mental impairment [Recovering/Resolving]

NARRATIVE: CASE EVENT DATE: 20251014
